FAERS Safety Report 6468263-9 (Version None)
Quarter: 2009Q4

REPORT INFORMATION
  Report Type: 
  Country: None (occurrence: None)
  Receive Date: 20091119
  Receipt Date: 20090727
  Transmission Date: 20100525
  Serious: No
  Sender: FDA-Public Use
  Company Number: WAES 0907USA04943

PATIENT
  Age: 50 Year
  Sex: Male
  Weight: 116.5744 kg

DRUGS (5)
  1. JANUVIA [Suspect]
     Dates: end: 20090701
  2. LANTUS [Suspect]
     Indication: TYPE 2 DIABETES MELLITUS
     Dosage: 40-70 UNITS/HS/SC
     Route: 058
     Dates: start: 20090301
  3. NOVOLOG [Suspect]
     Dosage: UNK
     Route: 065
  4. PIOGLITAZONE HYDROCHLORIDE [Concomitant]
     Dosage: UNK
     Route: 065
  5. ANESTHETIC (UNSPECIFIED) [Suspect]
     Indication: TOOTH EXTRACTION
     Dosage: UNK
     Route: 065
     Dates: start: 20090716

REACTIONS (6)
  - BLOOD GLUCOSE INCREASED [None]
  - COLD SWEAT [None]
  - DIZZINESS [None]
  - FEELING COLD [None]
  - MALAISE [None]
  - TREMOR [None]
